FAERS Safety Report 4749277-3 (Version None)
Quarter: 2005Q3

REPORT INFORMATION
  Report Type: 
  Country: None (occurrence: None)
  Receive Date: 20050816
  Receipt Date: 20050802
  Transmission Date: 20060218
  Serious: Yes (Other)
  Sender: FDA-Public Use
  Company Number: US145114

PATIENT
  Age: 33 Year
  Sex: Female

DRUGS (7)
  1. EPOGEN (EPOETIN ALFA) (ALBUMIN) [Suspect]
     Indication: DIALYSIS
     Dosage: IV
     Route: 042
  2. CALCIUM GLUCONATE [Concomitant]
  3. MULTI-VITAMINS [Concomitant]
  4. FOLIC ACID [Concomitant]
  5. DEXTRIFERRON [Concomitant]
  6. CALCITRIOL [Concomitant]
  7. . [Concomitant]

REACTIONS (12)
  - BLOOD CREATINE INCREASED [None]
  - BLOOD PHOSPHORUS INCREASED [None]
  - BLOOD UREA INCREASED [None]
  - CAESAREAN SECTION [None]
  - CERVICAL INCOMPETENCE [None]
  - CONDITION AGGRAVATED [None]
  - DRUG EXPOSURE DURING PREGNANCY [None]
  - HAEMOGLOBIN DECREASED [None]
  - HYPERTENSION [None]
  - HYPOPHOSPHATAEMIA [None]
  - PREGNANCY [None]
  - PREMATURE LABOUR [None]
